FAERS Safety Report 8018059-1 (Version None)
Quarter: 2012Q1

REPORT INFORMATION
  Report Type: 
  Country: None (occurrence: None)
  Receive Date: 20120103
  Receipt Date: 20111230
  Transmission Date: 20120608
  Serious: Yes (Other)
  Sender: FDA-Public Use
  Company Number: US-JNJFOC-20120100065

PATIENT
  Sex: Female
  Weight: 61.24 kg

DRUGS (2)
  1. HYDROCHLOROTHIAZIDE [Concomitant]
     Indication: SWELLING
     Route: 048
     Dates: end: 20111201
  2. LEVAQUIN [Suspect]
     Indication: PYELONEPHRITIS
     Route: 048
     Dates: start: 20111219, end: 20111224

REACTIONS (4)
  - PAIN IN EXTREMITY [None]
  - ARTHRALGIA [None]
  - TENDON DISORDER [None]
  - JOINT STIFFNESS [None]
